FAERS Safety Report 9783193 (Version 2)
Quarter: 2014Q1

REPORT INFORMATION
  Report Type: Spontaneous
  Country: DE (occurrence: DE)
  Receive Date: 20131226
  Receipt Date: 20140131
  Transmission Date: 20141002
  Serious: Yes (Hospitalization)
  Sender: FDA-Public Use
  Company Number: PHHY2013DE149236

PATIENT
  Sex: Male

DRUGS (26)
  1. EXFORGE HCT [Suspect]
     Indication: HYPERTENSION
     Dosage: UNK UKN, UNK
     Dates: start: 201310
  2. EXFORGE HCT [Suspect]
     Dosage: 1 DF (160MG VALS/10 MG METF+25 MG HCT), UNK
  3. EXFORGE HCT [Suspect]
     Dosage: 1 DF (320MG VALS/10 MG METF+25 MG HCT), UNK
     Dates: start: 201312
  4. EXFORGE HCT [Suspect]
     Dosage: 1 DF (160MG VALS/10 MG METF+25 MG HCT), UNK
  5. EXFORGE HCT [Suspect]
     Dosage: 1 DF (160MG VALS/5 MG METF/12.5MG HCT), UNK
  6. METOPROLOL [Concomitant]
     Indication: CARDIAC DISORDER
     Dosage: 1 DF, BID
  7. AAS [Concomitant]
     Indication: ANTICOAGULANT THERAPY
     Dosage: 1 DF, UNK
     Dates: start: 201311
  8. ATORVASTATIN [Concomitant]
     Indication: LIPIDS ABNORMAL
     Dosage: 1 DF, QD
     Dates: start: 201311
  9. SPIRONOLACTON [Concomitant]
     Dosage: UNK UKN, UNK
     Dates: start: 201310
  10. ATMADISC [Concomitant]
     Indication: ASTHMA
     Dosage: 1 DF (250 UKN), BID
  11. ATMADISC [Concomitant]
     Dosage: 1 DF (500), UNK
  12. METHOTREXATE [Concomitant]
     Indication: RHEUMATIC DISORDER
     Dosage: 1 DF, QW
  13. FOLCUR [Concomitant]
     Dosage: 1 DF, QID
  14. CALCILAC [Concomitant]
     Dosage: 1 DF, BID
  15. PAROXETIN [Concomitant]
     Indication: BURNOUT SYNDROME
     Dosage: UNK UKN, UNK
     Dates: start: 2010
  16. METYSOLON [Concomitant]
     Indication: NEURODERMATITIS
     Dosage: UNK UKN, QD (0.25-1 DF)
     Dates: start: 1981
  17. TOPISOLON [Concomitant]
     Indication: NEURODERMATITIS
     Dosage: UNK UKN, UNK
  18. CORTISONE [Concomitant]
     Indication: NEURODERMATITIS
     Dosage: UNK UKN, UNK
     Route: 061
  19. PANTOPRAZOL [Concomitant]
     Indication: DYSPEPSIA
     Dosage: 1 DF, QD
  20. OMEP [Concomitant]
     Indication: DYSPEPSIA
     Dosage: UNK UKN, PRN
  21. MELPERON [Concomitant]
     Indication: SLEEP DISORDER
     Dosage: UNK UKN, UNK
  22. VAGANTIN [Concomitant]
     Indication: SWEAT GLAND DISORDER
     Dosage: 1 DF, TID
  23. VIVIDRIN [Concomitant]
     Indication: EYE INFLAMMATION
     Dosage: UNK UKN, UNK
  24. LAC-OPHTAL [Concomitant]
     Indication: EYE INFLAMMATION
     Dosage: UNK UKN, UNK
  25. BEPANTHEN [Concomitant]
     Indication: EYE INFLAMMATION
     Dosage: UNK UKN, UNK
  26. ISOPTO MAX [Concomitant]
     Dosage: UNK UKN, UNK

REACTIONS (12)
  - Cerebrovascular accident [Recovered/Resolved]
  - Brain oedema [Unknown]
  - Hypoaesthesia [Recovered/Resolved]
  - Paraesthesia [Recovered/Resolved]
  - Feeling cold [Not Recovered/Not Resolved]
  - Eye disorder [Not Recovered/Not Resolved]
  - Condition aggravated [Recovering/Resolving]
  - Muscle twitching [Not Recovered/Not Resolved]
  - Renal disorder [Recovered/Resolved]
  - Fatigue [Not Recovered/Not Resolved]
  - Dizziness [Not Recovered/Not Resolved]
  - Pruritus [Not Recovered/Not Resolved]
